FAERS Safety Report 6924221-9 (Version None)
Quarter: 2010Q3

REPORT INFORMATION
  Report Type: 
  Country: None (occurrence: None)
  Receive Date: 20100813
  Receipt Date: 20100805
  Transmission Date: 20110219
  Serious: Yes (Other)
  Sender: FDA-Public Use
  Company Number: US-ABBOTT-10P-163-0657160-00

PATIENT
  Sex: Male
  Weight: 105.33 kg

DRUGS (1)
  1. KALETRA [Suspect]
     Indication: HIV INFECTION

REACTIONS (3)
  - APHONIA [None]
  - DYSPNOEA [None]
  - NAUSEA [None]
